FAERS Safety Report 5036016-4 (Version None)
Quarter: 2006Q2

REPORT INFORMATION
  Report Type: 
  Country: None (occurrence: None)
  Receive Date: 20060526
  Receipt Date: 20050829
  Transmission Date: 20061013
  Serious: Yes (Other)
  Sender: FDA-Public Use
  Company Number: PHEH2005US08354

PATIENT
  Sex: 0

DRUGS (1)
  1. DESFERAL [Suspect]

REACTIONS (1)
  - RENAL IMPAIRMENT [None]
